FAERS Safety Report 6144638-2 (Version None)
Quarter: 2009Q2

REPORT INFORMATION
  Report Type: 
  Country: None (occurrence: None)
  Receive Date: 20090406
  Receipt Date: 20090327
  Transmission Date: 20091009
  Serious: Yes (Disabling)
  Sender: FDA-Public Use
  Company Number: A0763031A

PATIENT
  Age: 64 Year
  Sex: Female
  Weight: 119.1 kg

DRUGS (15)
  1. ADVAIR HFA [Suspect]
     Indication: CONTINUOUS POSITIVE AIRWAY PRESSURE
     Dosage: 2SPR TWICE PER DAY
     Route: 055
     Dates: start: 20080701
  2. ADVAIR HFA [Suspect]
     Dosage: 1PUFF TWICE PER DAY
     Route: 055
     Dates: start: 20080401, end: 20080701
  3. SPIRIVA [Concomitant]
     Route: 055
     Dates: start: 20080401
  4. DILTIAZEM [Concomitant]
     Route: 048
     Dates: start: 20080401
  5. NOVALAN [Concomitant]
     Route: 058
     Dates: start: 20080401
  6. ZAROXOLYN [Concomitant]
     Dosage: 5MG PER DAY
     Route: 048
     Dates: start: 20080701
  7. FUROSEMIDE [Concomitant]
     Dosage: 100MG PER DAY
     Route: 048
     Dates: start: 20080401
  8. LOVASTATIN [Concomitant]
     Route: 048
     Dates: start: 20080401
  9. VITAMIN E [Concomitant]
     Route: 048
  10. ASPIRIN [Concomitant]
     Route: 048
     Dates: start: 20080401
  11. PLAVIX [Concomitant]
     Route: 048
     Dates: start: 20080401
  12. CENTRUM SILVER [Concomitant]
     Route: 048
     Dates: start: 20080401
  13. CALCIUM LACTATE [Concomitant]
     Route: 048
     Dates: start: 20080401
  14. CIPROFLOXACIN HCL [Concomitant]
     Dosage: 500MG TWICE PER DAY
     Route: 048
     Dates: start: 20081201, end: 20081211
  15. OXYGEN [Concomitant]
     Dates: start: 20080401

REACTIONS (6)
  - CANDIDIASIS [None]
  - CYSTITIS [None]
  - DRUG INEFFECTIVE [None]
  - DYSPHONIA [None]
  - DYSPNOEA [None]
  - PRODUCT QUALITY ISSUE [None]
